FAERS Safety Report 10712814 (Version 1)
Quarter: 2015Q1

REPORT INFORMATION
  Report Type: Spontaneous
  Country: US (occurrence: US)
  Receive Date: 20150115
  Receipt Date: 20150115
  Transmission Date: 20150721
  Serious: No
  Sender: FDA-Public Use
  Company Number: US-BAYER-2015-005719

PATIENT
  Sex: Male

DRUGS (1)
  1. ALEVE [Suspect]
     Active Substance: NAPROXEN SODIUM
     Dosage: UNK DF, UNK
     Route: 048

REACTIONS (3)
  - Burn oesophageal [Recovered/Resolved]
  - Throat irritation [Unknown]
  - Foreign body [Recovered/Resolved]

NARRATIVE: CASE EVENT DATE: 20150111
